FAERS Safety Report 9528350 (Version 2)
Quarter: 2013Q3

REPORT INFORMATION
  Report Type: Not Available
  Country: FR (occurrence: FR)
  Receive Date: 20130917
  Receipt Date: 20130917
  Transmission Date: 20140515
  Serious: Yes (Other)
  Sender: FDA-Public Use
  Company Number: FR-NAPPMUNDI-GBR-2013-0015464

PATIENT
  Age: 82 Year
  Sex: Male

DRUGS (1)
  1. OXYNORM 5 MG, GELULE [Suspect]
     Indication: PAIN
     Dosage: 40 MG IN 36 HOURS
     Route: 048
     Dates: start: 20130510, end: 20130511

REACTIONS (3)
  - Inappropriate schedule of drug administration [Recovered/Resolved]
  - Balance disorder [Recovered/Resolved]
  - Somnolence [Recovered/Resolved]
